FAERS Safety Report 7606207-4 (Version None)
Quarter: 2011Q3

REPORT INFORMATION
  Report Type: 
  Country: None (occurrence: None)
  Receive Date: 20110713
  Receipt Date: 20090112
  Transmission Date: 20111222
  Serious: Yes (Other)
  Sender: FDA-Public Use
  Company Number: US-BAYER-200910320NA

PATIENT
  Age: 60 Year
  Sex: Male
  Weight: 113 kg

DRUGS (19)
  1. TRASYLOL [Suspect]
     Indication: PRODUCT USED FOR UNKNOWN INDICATION
     Route: 042
     Dates: start: 20060810
  2. LISINOPRIL [Concomitant]
     Dosage: 20 MG
  3. ACETYLSALICYLIC ACID SRT [Concomitant]
     Dosage: 325 MG
  4. METOPROLOL SUCCINATE [Concomitant]
     Dosage: 100 MG
  5. PREDNISONE [Concomitant]
     Dosage: 20 MG
  6. TRASYLOL [Suspect]
     Dosage: UNK
     Route: 042
     Dates: start: 20060820
  7. COUMADIN [Concomitant]
     Dosage: 5 MG
  8. PROPOFOL [Concomitant]
     Dosage: UNK
     Dates: start: 20060810
  9. LASIX [Concomitant]
     Dosage: 40 MG
     Dates: start: 20060810
  10. SODIUM NITROPRUSSIDE [Concomitant]
     Dosage: 50 MG
     Dates: start: 20060810
  11. ALBUMIN (HUMAN) [Concomitant]
     Dosage: UNK
     Dates: start: 20060810
  12. OMEPRAZOLE [Concomitant]
     Dosage: 20 MG
  13. AMICAR [Concomitant]
     Dosage: 12 MG
     Dates: start: 20060810
  14. ANCEF [Concomitant]
     Dosage: UNK
     Dates: start: 20060810
  15. FLUOXETINE [Concomitant]
     Dosage: 20 MG
  16. LASIX [Concomitant]
     Dosage: 40 MG
  17. HEPARIN [Concomitant]
     Dosage: UNK
     Dates: start: 20060810
  18. PAVULON [Concomitant]
     Dosage: UNK
     Dates: start: 20060810
  19. MANNITOL [Concomitant]
     Dosage: UNK
     Dates: start: 20060810

REACTIONS (11)
  - EMOTIONAL DISTRESS [None]
  - STRESS [None]
  - RENAL IMPAIRMENT [None]
  - FEAR [None]
  - ANXIETY [None]
  - RENAL INJURY [None]
  - PAIN [None]
  - INJURY [None]
  - RENAL FAILURE [None]
  - UNEVALUABLE EVENT [None]
  - ANHEDONIA [None]
